FAERS Safety Report 23598859 (Version 1)
Quarter: 2024Q1

REPORT INFORMATION
  Report Type: Spontaneous
  Country: ES (occurrence: ES)
  Receive Date: 20240306
  Receipt Date: 20240306
  Transmission Date: 20240410
  Serious: Yes (Other)
  Sender: FDA-Public Use
  Company Number: ES-AEMPS-1490498

PATIENT
  Age: 10 Day
  Sex: Male

DRUGS (1)
  1. SILDENAFIL [Suspect]
     Active Substance: SILDENAFIL
     Indication: Pulmonary arterial hypertension
     Dosage: 0.4 MILLIGRAM/KILOGRAM
     Route: 042
     Dates: start: 20240125, end: 20240125

REACTIONS (2)
  - Hypotension [Recovered/Resolved]
  - Wrong dose [Recovered/Resolved]

NARRATIVE: CASE EVENT DATE: 20240125
